FAERS Safety Report 24189616 (Version 1)
Quarter: 2024Q3

REPORT INFORMATION
  Report Type: Spontaneous
  Country: US (occurrence: US)
  Receive Date: 20240808
  Receipt Date: 20240808
  Transmission Date: 20241016
  Serious: Yes (Other)
  Sender: PFIZER
  Company Number: US-PFIZER INC-202400231427

PATIENT
  Age: 69 Year
  Sex: Female

DRUGS (1)
  1. XELJANZ XR [Suspect]
     Active Substance: TOFACITINIB CITRATE
     Dosage: 11 MG TABLET EXTENDED RELEASE, TAKE 1 TABLET, BY ORAL ROUTE EVERYDAY
     Route: 048

REACTIONS (2)
  - Back pain [Recovering/Resolving]
  - Rheumatoid arthritis [Unknown]
